FAERS Safety Report 6528249-2 (Version None)
Quarter: 2009Q4

REPORT INFORMATION
  Report Type: 
  Country: None (occurrence: None)
  Receive Date: 20091231
  Receipt Date: 20090918
  Transmission Date: 20100525
  Serious: Yes (Congenital Anomaly)
  Sender: FDA-Public Use
  Company Number: LIT-09-0021

PATIENT

DRUGS (1)
  1. VALPROIC ACID [Suspect]
     Indication: EPILEPSY
     Dosage: 047

REACTIONS (3)
  - CONGENITAL CARDIOVASCULAR ANOMALY [None]
  - DYSMORPHISM [None]
  - NEURAL TUBE DEFECT [None]
